FAERS Safety Report 6185133-4 (Version None)
Quarter: 2009Q2

REPORT INFORMATION
  Report Type: 
  Country: None (occurrence: None)
  Receive Date: 20090507
  Receipt Date: 20090429
  Transmission Date: 20091009
  Serious: Yes (Other)
  Sender: FDA-Public Use
  Company Number: 1000006042

PATIENT
  Age: 31 Year
  Sex: Female

DRUGS (1)
  1. CERVIDIL [Suspect]
     Indication: LABOUR INDUCTION
     Dosage: 10 MG ( 10 MG, ONCE), VAGINAL
     Route: 067
     Dates: start: 20090428, end: 20090428

REACTIONS (2)
  - DRUG EXPOSURE DURING PREGNANCY [None]
  - UTERINE CONTRACTIONS ABNORMAL [None]
